FAERS Safety Report 4325166-3 (Version None)
Quarter: 2004Q1

REPORT INFORMATION
  Report Type: 
  Country: None (occurrence: None)
  Receive Date: 20040326
  Receipt Date: 20020516
  Transmission Date: 20041129
  Serious: Yes (Death, Hospitalization, Other)
  Sender: FDA-Public Use
  Company Number: US-MERCK-0205USA01984

PATIENT
  Age: 64 Year
  Sex: Male
  Weight: 131 kg

DRUGS (6)
  1. [THERAPY UNSPECIFIED] [Concomitant]
     Dates: start: 19960601
  2. VICODIN ES [Concomitant]
     Indication: PAIN
  3. ZESTRIL [Concomitant]
     Indication: HYPERTENSION
  4. VIOXX [Suspect]
     Indication: MONARTHRITIS
     Route: 048
     Dates: start: 20000801, end: 20010101
  5. RESTORIL [Concomitant]
     Indication: SLEEP DISORDER THERAPY
  6. COUMADIN [Concomitant]
     Route: 048
     Dates: start: 20010219, end: 20010228

REACTIONS (4)
  - ADVERSE EVENT [None]
  - CARDIAC ARREST [None]
  - DYSPNOEA [None]
  - UPPER GASTROINTESTINAL HAEMORRHAGE [None]
